FAERS Safety Report 7981517-X (Version None)
Quarter: 2011Q4

REPORT INFORMATION
  Report Type: 
  Country: None (occurrence: None)
  Receive Date: 20111215
  Receipt Date: 20111208
  Transmission Date: 20120403
  Serious: Yes (Death)
  Sender: FDA-Public Use
  Company Number: US-PFIZER INC-2011294358

PATIENT
  Sex: Male

DRUGS (5)
  1. REVATIO [Suspect]
     Indication: PULMONARY HYPERTENSION
     Dosage: 20 MG, 3X/DAY
     Dates: start: 20100101
  2. REVATIO [Suspect]
     Indication: IDIOPATHIC PULMONARY FIBROSIS
  3. SIMVASTATIN [Concomitant]
     Indication: HYPERTENSION
     Dosage: 20 MG, DAILY
  4. METOPROLOL [Concomitant]
     Indication: HYPERTENSION
     Dosage: 25 MG, 2X/DAY
  5. REVATIO [Suspect]
     Indication: HYPERTENSION

REACTIONS (1)
  - IDIOPATHIC PULMONARY FIBROSIS [None]
